FAERS Safety Report 10770731 (Version 1)
Quarter: 2015Q1

REPORT INFORMATION
  Report Type: Spontaneous
  Country: US (occurrence: None)
  Receive Date: 20150206
  Receipt Date: 20150206
  Transmission Date: 20150721
  Serious: No
  Sender: FDA-Public Use
  Company Number: HYP201308-000049

PATIENT
  Age: 44 Year
  Sex: Female
  Weight: 63.5 kg

DRUGS (2)
  1. RAVICTI [Suspect]
     Active Substance: GLYCEROL PHENYLBUTYRATE
     Indication: UREA CYCLE ENZYME DEFICIENCY
     Route: 048
     Dates: start: 201307
  2. RAVICTI [Suspect]
     Active Substance: GLYCEROL PHENYLBUTYRATE
     Indication: UREA CYCLE ENZYME DEFICIENCY
     Route: 048
     Dates: start: 201305, end: 201307

REACTIONS (5)
  - Decreased appetite [None]
  - Drooling [None]
  - Aggression [None]
  - Nausea [None]
  - Retching [None]

NARRATIVE: CASE EVENT DATE: 201305
